FAERS Safety Report 19049212 (Version 1)
Quarter: 2021Q1

REPORT INFORMATION
  Report Type: Spontaneous
  Country: NO (occurrence: NO)
  Receive Date: 20210323
  Receipt Date: 20210323
  Transmission Date: 20210420
  Serious: Yes (Other)
  Sender: FDA-Public Use
  Company Number: NO-ORGANON-O2103NOR002317

PATIENT
  Sex: Female

DRUGS (1)
  1. NASONEX [Suspect]
     Active Substance: MOMETASONE FUROATE
     Indication: SINUS PAIN
     Dosage: UNK
     Dates: start: 20210315

REACTIONS (6)
  - Product use in unapproved indication [Unknown]
  - Haemorrhage [Unknown]
  - Product prescribing issue [Unknown]
  - Sinus pain [Unknown]
  - Nausea [Unknown]
  - Nasal discomfort [Unknown]

NARRATIVE: CASE EVENT DATE: 20210315
